FAERS Safety Report 25899798 (Version 1)
Quarter: 2025Q4

REPORT INFORMATION
  Report Type: Spontaneous
  Country: US (occurrence: US)
  Receive Date: 20251009
  Receipt Date: 20251009
  Transmission Date: 20260118
  Serious: No
  Sender: TOLMAR
  Company Number: US-Tolmar-TLM-2025-06796

PATIENT

DRUGS (2)
  1. ELIGARD [Suspect]
     Active Substance: LEUPROLIDE ACETATE
     Indication: Product used for unknown indication
     Dosage: SN: 6489184894400?GTIN:00362935461500?OCT-2026; SEP-2026; SEP-2026
     Route: 065
  2. DEVICE [Suspect]
     Active Substance: DEVICE
     Indication: Product used for unknown indication
     Dosage: OCT-2026; SEP-2026; SEP-2026?SN: 6489184894400?GTIN:00362935461500?NDC:62935-461-50
     Route: 065

REACTIONS (2)
  - Intercepted product preparation error [Unknown]
  - Product preparation error [Unknown]
